FAERS Safety Report 9624620 (Version 1)
Quarter: 2013Q4

REPORT INFORMATION
  Report Type: Spontaneous
  Country: ES (occurrence: ES)
  Receive Date: 20131015
  Receipt Date: 20131015
  Transmission Date: 20140711
  Serious: Yes (Death, Other)
  Sender: FDA-Public Use
  Company Number: ES-PFIZER INC-2013295403

PATIENT
  Sex: Female

DRUGS (1)
  1. LYRICA [Suspect]
     Indication: COGNITIVE DISORDER
     Dosage: 25 MG, 1X/DAY (0-0-1)

REACTIONS (5)
  - Off label use [Fatal]
  - Respiratory failure [Fatal]
  - Abdominal distension [Unknown]
  - Local swelling [Unknown]
  - Heart rate abnormal [Unknown]
